FAERS Safety Report 7933069-8 (Version None)
Quarter: 2011Q4

REPORT INFORMATION
  Report Type: 
  Country: None (occurrence: None)
  Receive Date: 20111122
  Receipt Date: 20111114
  Transmission Date: 20120403
  Serious: Yes (Other)
  Sender: FDA-Public Use
  Company Number: NL-ABBOTT-11P-114-0851169-00

PATIENT
  Sex: Female
  Weight: 85 kg

DRUGS (8)
  1. POLYETHYLENE GLYCOL [Concomitant]
     Indication: CONSTIPATION
     Route: 048
  2. METOPROLOL SUCCINATE [Concomitant]
     Indication: HYPERTENSION
     Route: 048
  3. SULFASALAZINE [Concomitant]
     Indication: PSORIATIC ARTHROPATHY
     Route: 048
  4. HUMIRA [Suspect]
     Indication: PSORIATIC ARTHROPATHY
     Route: 058
     Dates: start: 20110627
  5. SUMATRIPTAN ZETPIL [Concomitant]
     Indication: MIGRAINE
     Route: 048
  6. CORTICOSTEROIDEN [Concomitant]
     Indication: PSORIATIC ARTHROPATHY
     Route: 058
  7. ESOMEPRAZOLE MAGNESIUM [Concomitant]
     Indication: PROPHYLAXIS AGAINST GASTROINTESTINAL ULCER
     Route: 048
  8. MAGNESIUM HYDROXIDE [Concomitant]
     Indication: CONSTIPATION
     Dosage: 1 TWO TIMES DAILY
     Route: 048

REACTIONS (12)
  - INFECTION SUSCEPTIBILITY INCREASED [None]
  - NASOPHARYNGITIS [None]
  - INJECTION SITE URTICARIA [None]
  - TINEA PEDIS [None]
  - EYELID INFECTION [None]
  - FURUNCLE [None]
  - UTERINE ENLARGEMENT [None]
  - INJECTION SITE PRURITUS [None]
  - UTERINE POLYP [None]
  - PSORIASIS [None]
  - INJECTION SITE REACTION [None]
  - POSTMENOPAUSAL HAEMORRHAGE [None]
